FAERS Safety Report 22354031 (Version 2)
Quarter: 2023Q2

REPORT INFORMATION
  Report Type: Spontaneous
  Country: IL (occurrence: IL)
  Receive Date: 20230523
  Receipt Date: 20230530
  Transmission Date: 20230721
  Serious: Yes (Other)
  Sender: FDA-Public Use
  Company Number: IL-BAYER-2023A068303

PATIENT
  Age: 54 Year
  Sex: Male

DRUGS (2)
  1. EYLEA [Suspect]
     Active Substance: AFLIBERCEPT
     Indication: Retinal vein occlusion
     Dosage: RIGHT EYE, SOLUTION FOR INJECTION IN PRE-FILLED SYRINGE; 40MG/ML
     Dates: start: 20230507, end: 20230507
  2. CYCLOPENTOLATE [Concomitant]
     Active Substance: CYCLOPENTOLATE
     Indication: Product used for unknown indication

REACTIONS (4)
  - Blindness [Unknown]
  - Endophthalmitis [Recovering/Resolving]
  - Hypoaesthesia eye [Unknown]
  - Vision blurred [Recovering/Resolving]

NARRATIVE: CASE EVENT DATE: 20230511
